FAERS Safety Report 23039873 (Version 1)
Quarter: 2023Q4

REPORT INFORMATION
  Report Type: Spontaneous
  Country: SE (occurrence: None)
  Receive Date: 20231006
  Receipt Date: 20231006
  Transmission Date: 20240109
  Serious: Yes (Hospitalization)
  Sender: FDA-Public Use
  Company Number: 2023A222272

PATIENT
  Age: 36 Year
  Sex: Male

DRUGS (4)
  1. QUETIAPINE [Suspect]
     Active Substance: QUETIAPINE
     Dosage: 1500.0MG ONCE/SINGLE ADMINISTRATION
     Dates: start: 20230909, end: 20230909
  2. LOSARTAN [Suspect]
     Active Substance: LOSARTAN
     Dosage: 2500.0MG ONCE/SINGLE ADMINISTRATION
     Dates: start: 20230909, end: 20230909
  3. PROPIOMAZINE [Suspect]
     Active Substance: PROPIOMAZINE
     Dosage: 500.0MG ONCE/SINGLE ADMINISTRATION
     Dates: start: 20230909, end: 20230909
  4. AMITRIPTYLINE [Suspect]
     Active Substance: AMITRIPTYLINE
     Dosage: 750.0MG ONCE/SINGLE ADMINISTRATION
     Dates: start: 20230909, end: 20230909

REACTIONS (3)
  - Suicidal ideation [Recovering/Resolving]
  - Toxicity to various agents [Recovering/Resolving]
  - Tachycardia [Recovering/Resolving]

NARRATIVE: CASE EVENT DATE: 20230909
